FAERS Safety Report 17011165 (Version 2)
Quarter: 2019Q4

REPORT INFORMATION
  Report Type: Report from Study
  Country: US (occurrence: US)
  Receive Date: 20191108
  Receipt Date: 20191126
  Transmission Date: 20200122
  Serious: Yes (Death)
  Sender: FDA-Public Use
  Company Number: US-PFIZER INC-2019484915

PATIENT
  Age: 86 Year
  Sex: Male

DRUGS (1)
  1. METHOTREXATE SODIUM. [Suspect]
     Active Substance: METHOTREXATE SODIUM
     Dosage: UNK

REACTIONS (7)
  - Haemolysis [Fatal]
  - Coagulopathy [Fatal]
  - Toxicity to various agents [Fatal]
  - Gastrointestinal haemorrhage [Fatal]
  - Hyperthermia [Fatal]
  - Thrombocytopenia [Fatal]
  - Pancytopenia [Fatal]
